FAERS Safety Report 20150778 (Version 1)
Quarter: 2021Q4

REPORT INFORMATION
  Report Type: Report from Study
  Country: CO (occurrence: CO)
  Receive Date: 20211206
  Receipt Date: 20211206
  Transmission Date: 20220304
  Serious: Yes (Other)
  Sender: FDA-Public Use
  Company Number: CO-NOVARTISPH-NVSC2021CO273936

PATIENT
  Sex: Female
  Weight: 67 kg

DRUGS (2)
  1. METOPROLOL [Suspect]
     Active Substance: METOPROLOL
     Indication: Hypertension
     Dosage: 50 MG, QD (STARTED MORE THAN 40 YEARS AGO)
     Route: 048
  2. ASPIRIN [Concomitant]
     Active Substance: ASPIRIN
     Indication: Ischaemic heart disease prophylaxis
     Dosage: 100 MG, QD (STARTED MORE THAN 40 YEARS AGO)
     Route: 048

REACTIONS (2)
  - Breast cancer metastatic [Unknown]
  - Incorrect dose administered [Unknown]
